FAERS Safety Report 6555762-4 (Version None)
Quarter: 2010Q1

REPORT INFORMATION
  Report Type: 
  Country: None (occurrence: None)
  Receive Date: 20100128
  Receipt Date: 20100118
  Transmission Date: 20100710
  Serious: Yes (Hospitalization)
  Sender: FDA-Public Use
  Company Number: IT-CELGENEUS-083-21880-09110253

PATIENT
  Sex: Female

DRUGS (5)
  1. REVLIMID [Suspect]
     Indication: MULTIPLE MYELOMA
     Route: 065
     Dates: start: 20090803, end: 20090823
  2. BACTRIM [Concomitant]
     Indication: PROPHYLAXIS
     Route: 065
     Dates: start: 20090803, end: 20090823
  3. HEPARIN [Concomitant]
     Indication: PROPHYLAXIS
     Route: 065
     Dates: start: 20090803, end: 20090823
  4. OMEPRAZOLE [Concomitant]
     Indication: PROPHYLAXIS
     Route: 065
     Dates: start: 20090803, end: 20090823
  5. DIFLUCAN [Concomitant]
     Indication: PROPHYLAXIS
     Route: 065
     Dates: start: 20090803, end: 20090829

REACTIONS (2)
  - HYPONATRAEMIA [None]
  - TRANSAMINASES INCREASED [None]
